FAERS Safety Report 5254518-2 (Version None)
Quarter: 2007Q1

REPORT INFORMATION
  Report Type: 
  Country: None (occurrence: None)
  Receive Date: 20070302
  Receipt Date: 20070221
  Transmission Date: 20070707
  Serious: Yes (Other)
  Sender: FDA-Public Use
  Company Number: CA-BRISTOL-MYERS SQUIBB COMPANY-13686019

PATIENT
  Age: 12 Year
  Sex: Female

DRUGS (1)
  1. CEFPROZIL [Suspect]
     Indication: SINUSITIS
     Route: 048
     Dates: start: 20061201

REACTIONS (1)
  - TOOTH DISCOLOURATION [None]
